FAERS Safety Report 9287604 (Version 2)
Quarter: 2013Q2

REPORT INFORMATION
  Report Type: Spontaneous
  Country: CZ (occurrence: CZ)
  Receive Date: 20130514
  Receipt Date: 20130626
  Transmission Date: 20140414
  Serious: Yes (Other)
  Sender: FDA-Public Use
  Company Number: CZ-AMGEN-CZESP2013033085

PATIENT
  Age: 7 Year
  Sex: Female
  Weight: 25 kg

DRUGS (2)
  1. ROMIPLOSTIM [Suspect]
     Indication: IDIOPATHIC THROMBOCYTOPENIC PURPURA
     Dosage: 10 MUG/KG, QWK
     Route: 058
     Dates: start: 20130321
  2. PREDNISONE [Concomitant]
     Indication: IDIOPATHIC THROMBOCYTOPENIC PURPURA
     Dosage: 4 MG/KG, QD
     Route: 048
     Dates: start: 20130418, end: 20130421

REACTIONS (2)
  - Drug effect incomplete [Not Recovered/Not Resolved]
  - Platelet count decreased [Not Recovered/Not Resolved]
